FAERS Safety Report 8345908-X (Version None)
Quarter: 2012Q2

REPORT INFORMATION
  Report Type: 
  Country: None (occurrence: None)
  Receive Date: 20120509
  Receipt Date: 20120423
  Transmission Date: 20120825
  Serious: No
  Sender: FDA-Public Use
  Company Number: US-BIOGENIDEC-2012BI011739

PATIENT
  Sex: Female

DRUGS (8)
  1. AMPYRA [Concomitant]
     Indication: GAIT DISTURBANCE
     Dates: start: 20100401
  2. EFFEXOR [Concomitant]
  3. PROVIGIL [Concomitant]
  4. IBUPROFEN TABLETS [Concomitant]
     Indication: PREMEDICATION
  5. KLONOPIN [Concomitant]
  6. BETASERON [Concomitant]
     Route: 058
  7. NEURONTIN [Concomitant]
  8. AVONEX [Suspect]
     Indication: PRODUCT USED FOR UNKNOWN INDICATION
     Route: 030

REACTIONS (16)
  - FALL [None]
  - PAIN [None]
  - SKIN LESION [None]
  - INJECTION SITE PAIN [None]
  - SPINAL COLUMN STENOSIS [None]
  - VERTEBRAL FORAMINAL STENOSIS [None]
  - PAIN IN EXTREMITY [None]
  - INJECTION SITE MASS [None]
  - INJECTION SITE SWELLING [None]
  - FATIGUE [None]
  - SPINAL OSTEOARTHRITIS [None]
  - INJECTION SITE CALCIFICATION [None]
  - INJECTION SITE REACTION [None]
  - SKIN DISORDER [None]
  - DIZZINESS [None]
  - SPONDYLOLISTHESIS [None]
